FAERS Safety Report 5300574-2 (Version None)
Quarter: 2007Q2

REPORT INFORMATION
  Report Type: 
  Country: None (occurrence: None)
  Receive Date: 20070418
  Receipt Date: 20070416
  Transmission Date: 20071010
  Serious: Yes (Hospitalization)
  Sender: FDA-Public Use
  Company Number: US-GLAXOSMITHKLINE-A0647432A

PATIENT
  Age: 56 Year
  Sex: Female

DRUGS (3)
  1. LAMICTAL [Suspect]
     Indication: DRUG USE FOR UNKNOWN INDICATION
     Dosage: 200MG PER DAY
     Route: 048
  2. NARCOTICS (UNSPECIFIED) [Concomitant]
  3. XANAX [Concomitant]

REACTIONS (2)
  - AMMONIA INCREASED [None]
  - DELIRIUM [None]
